FAERS Safety Report 7658778-X (Version None)
Quarter: 2011Q3

REPORT INFORMATION
  Report Type: 
  Country: None (occurrence: None)
  Receive Date: 20110805
  Receipt Date: 20110805
  Transmission Date: 20111222
  Serious: Yes (Other)
  Sender: FDA-Public Use
  Company Number: None

PATIENT
  Age: 30 Year
  Sex: Female
  Weight: 63.502 kg

DRUGS (9)
  1. TUBERSOL [Suspect]
     Indication: TUBERCULOSIS
  2. ACETAMINOPHEN [Concomitant]
     Route: 048
  3. ASPIRIN [Concomitant]
     Route: 048
  4. ROSUVASTATIN [Concomitant]
     Route: 048
  5. FUROSEMIDE [Concomitant]
     Route: 048
  6. INSULIN DETERMIR [Concomitant]
     Route: 058
  7. LISINOPRIL [Concomitant]
     Route: 048
  8. INSULIN [Concomitant]
  9. SPIRONOLACTONE [Concomitant]
     Route: 048

REACTIONS (2)
  - URTICARIA [None]
  - RESPIRATORY DISORDER [None]
